FAERS Safety Report 9881016 (Version 4)
Quarter: 2014Q2

REPORT INFORMATION
  Report Type: Report from Study
  Country: ZA (occurrence: ZA)
  Receive Date: 20140207
  Receipt Date: 20140509
  Transmission Date: 20141212
  Serious: Yes (Other)
  Sender: FDA-Public Use
  Company Number: PHHY2014ZA013316

PATIENT
  Age: 75 Year
  Sex: Female

DRUGS (3)
  1. ACLASTA [Suspect]
     Indication: OSTEOPOROSIS
     Dosage: 5 MG, PER 100 ML
     Route: 042
  2. ACLASTA [Suspect]
     Dosage: 5 MG, PER 100 ML
     Route: 042
  3. ACLASTA [Suspect]
     Dosage: 5 MG, PER 100 ML
     Route: 042

REACTIONS (4)
  - Rib fracture [Unknown]
  - Pulmonary function test decreased [Unknown]
  - Osteoporosis [Unknown]
  - Condition aggravated [Unknown]
